FAERS Safety Report 17811566 (Version 3)
Quarter: 2020Q2

REPORT INFORMATION
  Report Type: Spontaneous
  Country: US (occurrence: US)
  Receive Date: 20200521
  Receipt Date: 20200608
  Transmission Date: 20200714
  Serious: Yes (Hospitalization, Other)
  Sender: FDA-Public Use
  Company Number: US-PFIZER INC-2020201736

PATIENT
  Age: 34 Year
  Sex: Female
  Weight: 87.09 kg

DRUGS (3)
  1. REVATIO [Suspect]
     Active Substance: SILDENAFIL CITRATE
     Indication: ARTIFICIAL HEART DEVICE USER
     Dosage: 20 MG, 3X/DAY
     Route: 048
  2. REVATIO [Suspect]
     Active Substance: SILDENAFIL CITRATE
     Dosage: UNK, ONCE A DAY
  3. REVATIO [Suspect]
     Active Substance: SILDENAFIL CITRATE
     Dosage: UNK, TWICE A DAY

REACTIONS (3)
  - Cerebrovascular accident [Recovering/Resolving]
  - Product use in unapproved indication [Unknown]
  - Off label use [Unknown]
